FAERS Safety Report 8672971 (Version 4)
Quarter: 2012Q4

REPORT INFORMATION
  Report Type: 
  Country: US (occurrence: US)
  Receive Date: 20120719
  Receipt Date: 20121116
  Transmission Date: 20130627
  Serious: Yes (Hospitalization, Other)
  Sender: FDA-Public Use
  Company Number: US-ASTRAZENECA-2010SE11683

PATIENT
  Age: 89 Year
  Sex: Female

DRUGS (1)
  1. NEXIUM [Suspect]
     Route: 048

REACTIONS (14)
  - Breast cancer [Unknown]
  - Loss of consciousness [Unknown]
  - Fall [Unknown]
  - Joint injury [Unknown]
  - Musculoskeletal discomfort [Unknown]
  - Limb discomfort [Unknown]
  - Arthropathy [Unknown]
  - Polyp [Unknown]
  - Eye infection [Unknown]
  - Pain in extremity [Unknown]
  - Gait disturbance [Unknown]
  - Hearing impaired [Unknown]
  - Arthralgia [Unknown]
  - Malaise [Unknown]
